FAERS Safety Report 8980940 (Version 1)
Quarter: 2012Q4

REPORT INFORMATION
  Report Type: 
  Country: US (occurrence: US)
  Receive Date: 20121221
  Receipt Date: 20121221
  Transmission Date: 20130627
  Serious: Yes (Hospitalization, Other)
  Sender: FDA-Public Use
  Company Number: -DX529-2012DX000268

PATIENT
  Age: 38 Year
  Sex: Female
  Weight: 82.56 kg

DRUGS (2)
  1. KALBITOR [Suspect]
     Indication: HEREDITARY ANGIOEDEMA
     Route: 058
     Dates: start: 201211, end: 201211
  2. BERINERT [Suspect]
     Indication: HEREDITARY ANGIOEDEMA
     Dates: start: 201211, end: 201211

REACTIONS (2)
  - Hypersensitivity [Recovered/Resolved]
  - Swelling [None]
